FAERS Safety Report 20908331 (Version 4)
Quarter: 2022Q4

REPORT INFORMATION
  Report Type: Spontaneous
  Country: US (occurrence: US)
  Receive Date: 20220603
  Receipt Date: 20221011
  Transmission Date: 20230113
  Serious: Yes (Hospitalization, Other)
  Sender: FDA-Public Use
  Company Number: US-SUN PHARMACEUTICAL INDUSTRIES LTD-2022R1-339091

PATIENT
  Age: 74 Year
  Sex: Male

DRUGS (2)
  1. LEVULAN KERASTICK [Suspect]
     Active Substance: AMINOLEVULINIC ACID HYDROCHLORIDE
     Indication: Actinic keratosis
     Dosage: UNK
     Route: 061
     Dates: start: 20220221, end: 20220221
  2. LEVULAN KERASTICK [Suspect]
     Active Substance: AMINOLEVULINIC ACID HYDROCHLORIDE
     Indication: Photodynamic therapy

REACTIONS (9)
  - Hypersensitivity [Unknown]
  - Pain [Unknown]
  - Discomfort [Unknown]
  - Inflammation [Not Recovered/Not Resolved]
  - Atrial fibrillation [Unknown]
  - Limb immobilisation [Unknown]
  - Wrong technique in product usage process [Unknown]
  - Adverse reaction [Unknown]
  - Illness [Unknown]

NARRATIVE: CASE EVENT DATE: 20220221
